FAERS Safety Report 4357608-1 (Version None)
Quarter: 2004Q2

REPORT INFORMATION
  Report Type: 
  Country: None (occurrence: None)
  Receive Date: 20040512
  Receipt Date: 20040512
  Transmission Date: 20050107
  Serious: Yes (Life-Threatening)
  Sender: FDA-Public Use
  Company Number: None

PATIENT
  Age: 34 Year
  Sex: Female
  Weight: 58.3 kg

DRUGS (2)
  1. CYTOXAN [Suspect]
     Indication: HAEMATOPOIETIC STEM CELL MOBILISATION
     Dosage: 6.8 GM X 1 IV
     Route: 042
     Dates: start: 20040429, end: 20040429
  2. CYTOXAN [Suspect]
     Indication: STEM CELL TRANSPLANT
     Dosage: 6.8 GM X 1 IV
     Route: 042
     Dates: start: 20040429, end: 20040429

REACTIONS (7)
  - ANAPHYLACTIC REACTION [None]
  - CHEST PAIN [None]
  - DYSPNOEA [None]
  - FLUSHING [None]
  - PRURITUS [None]
  - RASH [None]
  - WHEEZING [None]
